FAERS Safety Report 15913690 (Version 1)
Quarter: 2019Q1

REPORT INFORMATION
  Report Type: Spontaneous
  Country: US (occurrence: US)
  Receive Date: 20190204
  Receipt Date: 20190204
  Transmission Date: 20190417
  Serious: No
  Sender: FDA-Public Use
  Company Number: US-ABBVIE-18K-163-2486109-00

PATIENT
  Age: 55 Year
  Sex: Female
  Weight: 136.2 kg

DRUGS (1)
  1. HUMIRA [Suspect]
     Active Substance: ADALIMUMAB
     Indication: PSORIASIS
     Route: 058
     Dates: start: 2014, end: 201808

REACTIONS (3)
  - Vasculitis [Recovering/Resolving]
  - Wound [Recovering/Resolving]
  - Hepatic mass [Unknown]

NARRATIVE: CASE EVENT DATE: 20180529
